FAERS Safety Report 9844609 (Version 2)
Quarter: 2014Q1

REPORT INFORMATION
  Report Type: Spontaneous
  Country: US (occurrence: None)
  Receive Date: 20140123
  Receipt Date: 20140129
  Transmission Date: 20141002
  Serious: Yes (Hospitalization)
  Sender: FDA-Public Use
  Company Number: 2014040109

PATIENT
  Age: 18 Year
  Sex: Female

DRUGS (2)
  1. STIMATE [Suspect]
     Indication: MENORRHAGIA
     Dosage: DRUG START DATE ??-JAN-2014, 1.5 MG/ML: 2 PUFFS (1 PUFF TO BOTH NARES) RESPIRATORY (INHALATION))
     Dates: start: 20140108, end: 20140108
  2. STIMATE [Suspect]
     Indication: VON WILLEBRAND^S DISEASE
     Dosage: DRUG START DATE ??-JAN-2014, 1.5 MG/ML: 2 PUFFS (1 PUFF TO BOTH NARES) RESPIRATORY (INHALATION))
     Dates: start: 20140108, end: 20140108

REACTIONS (3)
  - Hyponatraemia [None]
  - Fatigue [None]
  - Headache [None]
